FAERS Safety Report 14403410 (Version 8)
Quarter: 2018Q2

REPORT INFORMATION
  Report Type: Spontaneous
  Country: US (occurrence: US)
  Receive Date: 20180117
  Receipt Date: 20180606
  Transmission Date: 20180711
  Serious: Yes (Hospitalization, Other)
  Sender: FDA-Public Use
  Company Number: US-PFIZER INC-2018018834

PATIENT
  Age: 7 Year
  Sex: Male
  Weight: 19 kg

DRUGS (4)
  1. DAPTOMYCIN. [Suspect]
     Active Substance: DAPTOMYCIN
     Dosage: 156 MG, 1X/DAY (EVERY 24 HOURS)
     Route: 042
     Dates: start: 20171217, end: 20171217
  2. CEFTRIAXONE. [Concomitant]
     Active Substance: CEFTRIAXONE
     Dosage: 1.5 G, 1X/DAY
     Dates: start: 20171213, end: 20180102
  3. DAPTOMYCIN. [Suspect]
     Active Substance: DAPTOMYCIN
     Indication: SICKLE CELL ANAEMIA WITH CRISIS
     Dosage: 156 MG, 1X/DAY (EVERY 24 HOURS)
     Route: 042
     Dates: start: 20171213
  4. DAPTOMYCIN. [Concomitant]
     Active Substance: DAPTOMYCIN
     Indication: SICKLE CELL ANAEMIA WITH CRISIS
     Dosage: 156 MG, 1X/DAY (EVERY 24 HOURS)

REACTIONS (6)
  - Seizure [Unknown]
  - Dyspnoea [Unknown]
  - Tremor [Unknown]
  - Chills [Unknown]
  - Product use in unapproved indication [Unknown]
  - Headache [Unknown]

NARRATIVE: CASE EVENT DATE: 20171213
